FAERS Safety Report 4754198-6 (Version None)
Quarter: 2005Q3

REPORT INFORMATION
  Report Type: 
  Country: None (occurrence: None)
  Receive Date: 20050826
  Receipt Date: 20050810
  Transmission Date: 20060218
  Serious: Yes (Death)
  Sender: FDA-Public Use
  Company Number: 64-2005-0029

PATIENT
  Age: 74 Year
  Sex: Male

DRUGS (9)
  1. PHOSLO [Suspect]
     Indication: HYPERPHOSPHATAEMIA
     Dosage: 1 TID PO
     Route: 048
     Dates: start: 20050404
  2. LIPITOR [Suspect]
     Indication: HYPERCHOLESTEROLAEMIA
     Dosage: 20 MG QD PO
     Route: 048
     Dates: start: 20050404
  3. VITAMIN B COMPLEX WITH C [Concomitant]
  4. QUININE SULFATE [Concomitant]
  5. ASPIRIN [Concomitant]
  6. MULTI-VITAMINS [Concomitant]
  7. NAPROXEN [Concomitant]
  8. ZOLOFT [Concomitant]
  9. LAXATIVE [Concomitant]

REACTIONS (1)
  - COMPLETED SUICIDE [None]
